FAERS Safety Report 7334542 (Version 3)
Quarter: 2014Q1

REPORT INFORMATION
  Report Type: Spontaneous
  Country: US (occurrence: US)
  Receive Date: 20100329
  Receipt Date: 20140106
  Transmission Date: 20141002
  Serious: No
  Sender: FDA-Public Use
  Company Number: US-BIOGENIDEC-2010BI009437

PATIENT
  Age: 60 Year
  Sex: Female
  Weight: 63 kg

DRUGS (18)
  1. AVONEX [Suspect]
     Indication: MULTIPLE SCLEROSIS
     Route: 030
     Dates: start: 20000401
  2. AVONEX [Suspect]
     Indication: MULTIPLE SCLEROSIS
     Route: 030
     Dates: end: 20100114
  3. AVONEX [Suspect]
     Indication: MULTIPLE SCLEROSIS
     Route: 030
     Dates: start: 20101203
  4. CHOLECALCIFEROL [Concomitant]
     Route: 048
  5. OMEGA 3 FATTY ACID [Concomitant]
     Route: 048
  6. ALENDRONATE SODIUM [Concomitant]
     Route: 048
  7. LISINOPRIL [Concomitant]
     Route: 048
  8. AMLODIPINE BESYLATE [Concomitant]
     Route: 048
  9. SENNA [Concomitant]
     Route: 048
  10. CALCIUM CARBONATE [Concomitant]
     Route: 048
  11. NAPROXEN SODIUM [Concomitant]
     Route: 048
  12. FLAXSEED OIL [Concomitant]
     Route: 048
  13. OXYBUTYNIN [Concomitant]
     Route: 048
  14. FERROUS GLUCONATE [Concomitant]
     Route: 048
  15. ASPIRIN [Concomitant]
     Route: 048
  16. BACLOFEN [Concomitant]
     Route: 048
  17. MULTIVITAMINS WITH MINERALS [Concomitant]
     Route: 048
  18. CALCIUM CARBONATE PLUS VITAMIN D3 [Concomitant]
     Route: 048

REACTIONS (4)
  - Hyperlipidaemia [Not Recovered/Not Resolved]
  - Aspartate aminotransferase increased [Recovered/Resolved]
  - Alanine aminotransferase increased [Recovered/Resolved]
  - Liver function test abnormal [Unknown]
